FAERS Safety Report 7030078-0 (Version None)
Quarter: 2010Q4

REPORT INFORMATION
  Report Type: 
  Country: None (occurrence: None)
  Receive Date: 20101006
  Receipt Date: 20100930
  Transmission Date: 20110411
  Serious: Yes (Other)
  Sender: FDA-Public Use
  Company Number: JP-PFIZER INC-2010105449

PATIENT
  Age: 35 Year
  Sex: Female

DRUGS (1)
  1. CHAMPIX [Suspect]
     Dosage: 2 MG/DAY
     Route: 048
     Dates: start: 20100714, end: 20100828

REACTIONS (1)
  - AMENORRHOEA [None]
